FAERS Safety Report 7117314-7 (Version None)
Quarter: 2010Q4

REPORT INFORMATION
  Report Type: 
  Country: None (occurrence: None)
  Receive Date: 20101122
  Receipt Date: 20101110
  Transmission Date: 20110411
  Serious: Yes (Hospitalization)
  Sender: FDA-Public Use
  Company Number: DE-ELI_LILLY_AND_COMPANY-DE201011002648

PATIENT
  Sex: Male

DRUGS (2)
  1. BYETTA [Suspect]
     Indication: TYPE 2 DIABETES MELLITUS
     Dosage: 5 UG, 2/D
     Route: 058
     Dates: start: 20101018
  2. METFORMIN HCL [Concomitant]
     Dosage: 1000 MG, 2/D
     Route: 048
     Dates: start: 20101007

REACTIONS (2)
  - DYSPNOEA [None]
  - LUNG DISORDER [None]
